FAERS Safety Report 8565632 (Version 2)
Quarter: 2014Q1

REPORT INFORMATION
  Report Type: Spontaneous
  Country: US (occurrence: US)
  Receive Date: 20120516
  Receipt Date: 20140127
  Transmission Date: 20141002
  Serious: Yes (Hospitalization)
  Sender: FDA-Public Use
  Company Number: US-GLAXOSMITHKLINE-B0801548A

PATIENT
  Age: 59 Year
  Sex: Male
  Weight: 131.8 kg

DRUGS (1)
  1. AVANDIA [Suspect]
     Indication: DIABETES MELLITUS
     Route: 048
     Dates: start: 20040615, end: 200606

REACTIONS (3)
  - Cardiac failure congestive [Not Recovered/Not Resolved]
  - Myocardial infarction [Unknown]
  - Cerebrovascular accident [Unknown]
